FAERS Safety Report 10177209 (Version 1)
Quarter: 2014Q2

REPORT INFORMATION
  Report Type: Spontaneous
  Country: NL (occurrence: NL)
  Receive Date: 20140516
  Receipt Date: 20140516
  Transmission Date: 20141212
  Serious: Yes (Hospitalization)
  Sender: FDA-Public Use
  Company Number: NL-AMGEN INC.-NLDSP2014034681

PATIENT
  Sex: Female

DRUGS (3)
  1. XGEVA [Suspect]
     Indication: PROPHYLAXIS
     Dosage: 1.7 ML (70MG/ML), Q4WK
     Route: 058
     Dates: start: 20130226
  2. XGEVA [Suspect]
     Indication: METASTASES TO BONE
  3. ARANESP [Concomitant]
     Dosage: 500 MUG, UNK

REACTIONS (1)
  - Investigation [Unknown]
